FAERS Safety Report 17367379 (Version 6)
Quarter: 2021Q2

REPORT INFORMATION
  Report Type: Spontaneous
  Country: US (occurrence: US)
  Receive Date: 20200204
  Receipt Date: 20210616
  Transmission Date: 20210716
  Serious: Yes (Other)
  Sender: FDA-Public Use
  Company Number: US-PFIZER INC-2020043995

PATIENT
  Age: 21 Year
  Sex: Male
  Weight: 61.23 kg

DRUGS (5)
  1. XELJANZ [Suspect]
     Active Substance: TOFACITINIB CITRATE
     Dosage: 15 MG, DAILY (5MG TAB 2PO QAM, 1 PO QPM)
     Route: 048
     Dates: start: 2016
  2. XELJANZ [Suspect]
     Active Substance: TOFACITINIB CITRATE
     Dosage: 5 MG, 1X/DAY (ONCE DAILY IN THE MORNING)
     Route: 048
     Dates: start: 2015, end: 2018
  3. XELJANZ [Suspect]
     Active Substance: TOFACITINIB CITRATE
     Indication: ANGIOPATHY
     Dosage: 15 MG, DAILY (2 TABS PO IN AM AND 1 TAB PO IN PM)
     Route: 048
  4. XELJANZ [Suspect]
     Active Substance: TOFACITINIB CITRATE
     Indication: JUVENILE IDIOPATHIC ARTHRITIS
     Dosage: 5 MG, 2X/DAY (ONE TAB PO TWICE A DAY)
     Route: 048
  5. XELJANZ [Suspect]
     Active Substance: TOFACITINIB CITRATE
     Dosage: 15 MG, DAILY (2 TABLETS IN THE MORNING AND 1 AT NIGHT)

REACTIONS (20)
  - Vasculitis [Unknown]
  - Condition aggravated [Unknown]
  - Product dose omission issue [Unknown]
  - Off label use [Unknown]
  - Inflammatory marker increased [Unknown]
  - Peripheral swelling [Unknown]
  - Eye irritation [Unknown]
  - Treatment noncompliance [Unknown]
  - Therapeutic response unexpected [Unknown]
  - Gait disturbance [Unknown]
  - Inflammation [Recovering/Resolving]
  - Skin ulcer [Recovering/Resolving]
  - Dyspnoea [Unknown]
  - Rhinitis allergic [Unknown]
  - Pain [Unknown]
  - Vernal keratoconjunctivitis [Unknown]
  - Skin lesion inflammation [Recovering/Resolving]
  - Intentional product use issue [Unknown]
  - Erythema [Unknown]
  - Pre-existing condition improved [Unknown]
